FAERS Safety Report 13521817 (Version 1)
Quarter: 2017Q2

REPORT INFORMATION
  Report Type: Spontaneous
  Country: US (occurrence: US)
  Receive Date: 20170508
  Receipt Date: 20170508
  Transmission Date: 20170830
  Serious: No
  Sender: FDA-Public Use
  Company Number: US-ALKABELLO-2017AA001427

PATIENT
  Age: 44 Year
  Sex: Female

DRUGS (1)
  1. DAE BULK (1458) CRANGON PENAEUS [Suspect]
     Active Substance: CRANGON SHRIMP
     Dates: start: 20170410, end: 20170410

REACTIONS (1)
  - False negative investigation result [Recovered/Resolved]

NARRATIVE: CASE EVENT DATE: 20170410
